FAERS Safety Report 5028117-1 (Version None)
Quarter: 2006Q2

REPORT INFORMATION
  Report Type: 
  Country: None (occurrence: None)
  Receive Date: 20060609
  Receipt Date: 20060525
  Transmission Date: 20061013
  Serious: Yes (Hospitalization, Other)
  Sender: FDA-Public Use
  Company Number: 8017151

PATIENT
  Age: 65 Year
  Sex: Male

DRUGS (12)
  1. KEPPRA [Suspect]
     Indication: GRAND MAL CONVULSION
     Dosage: 500 MG 2/D PO
     Route: 048
     Dates: start: 20060522
  2. ACYCLOVIR [Suspect]
     Indication: PROPHYLAXIS
     Dosage: 500 MG 2/D PO
     Route: 048
     Dates: start: 20060524
  3. INSULIN /00646001/ [Concomitant]
  4. PREDNISOLONE EYE DROPS [Concomitant]
  5. METHYLPHENIDATE HCL [Concomitant]
  6. ONDANSETRON HCL [Concomitant]
  7. TACROLIMUS [Concomitant]
  8. URSODIOL [Concomitant]
  9. LEXAPRO [Concomitant]
  10. PROTONIX /01263201/ [Concomitant]
  11. REGLAN  /00041901/ [Concomitant]
  12. FLOMAX /00889901/ [Concomitant]

REACTIONS (3)
  - HAEMATOCRIT DECREASED [None]
  - PLATELET COUNT DECREASED [None]
  - WHITE BLOOD CELL COUNT DECREASED [None]
